FAERS Safety Report 7655370-8 (Version None)
Quarter: 2011Q3

REPORT INFORMATION
  Report Type: 
  Country: None (occurrence: None)
  Receive Date: 20110729
  Receipt Date: 20110714
  Transmission Date: 20111222
  Serious: Yes (Hospitalization)
  Sender: FDA-Public Use
  Company Number: TCI2011A04032

PATIENT
  Age: 82 Year
  Sex: Male

DRUGS (10)
  1. SELBEX (TEPRENONE) [Concomitant]
  2. SIMVASTATIN [Concomitant]
  3. ACTOS [Suspect]
     Indication: DIABETES MELLITUS
     Dosage: 15 MG (15 MG,1 IN 1 D) PER ORAL
     Route: 048
     Dates: start: 20060901
  4. BLOPRESS (CANDESARTAN CILEXETIL) [Concomitant]
  5. AMLODIN (AMLODIPINE HYDROCHLORIDE) [Concomitant]
  6. BASEN (VOGLIBOSE) [Concomitant]
  7. TICLOPIDINE HCL [Concomitant]
  8. AMARYL [Concomitant]
  9. MAGNESIUM OXIDE [Concomitant]
  10. SERMION (NICERGOLINE) [Concomitant]

REACTIONS (4)
  - HAEMATURIA [None]
  - GLUCOSE URINE PRESENT [None]
  - PROTEIN URINE PRESENT [None]
  - BLADDER NEOPLASM [None]
